FAERS Safety Report 23102801 (Version 1)
Quarter: 2023Q4

REPORT INFORMATION
  Report Type: Spontaneous
  Country: US (occurrence: US)
  Receive Date: 20231025
  Receipt Date: 20231025
  Transmission Date: 20240109
  Serious: Yes (Other)
  Sender: FDA-Public Use
  Company Number: US-MYLANLABS-2023M1109313

PATIENT
  Age: 68 Year
  Sex: Female

DRUGS (1)
  1. VENLAFAXINE [Suspect]
     Active Substance: VENLAFAXINE HYDROCHLORIDE
     Indication: Depression
     Dosage: UNK
     Route: 065

REACTIONS (1)
  - Rapid eye movement sleep behaviour disorder [Recovered/Resolved]
